FAERS Safety Report 10640256 (Version 1)
Quarter: 2014Q4

REPORT INFORMATION
  Report Type: Spontaneous
  Country: CA (occurrence: None)
  Receive Date: 20141205
  Receipt Date: 20141205
  Transmission Date: 20150529
  Serious: Yes (Other)
  Sender: FDA-Public Use
  Company Number: 2644405

PATIENT
  Age: 45 Year
  Sex: Female

DRUGS (3)
  1. NITROFURANTOIN. [Suspect]
     Active Substance: NITROFURANTOIN
     Indication: URINARY TRACT INFECTION
  2. CIPROFLOXACIN. [Suspect]
     Active Substance: CIPROFLOXACIN
     Indication: URINARY TRACT INFECTION
  3. ACETAMINOPHEN. [Concomitant]
     Active Substance: ACETAMINOPHEN

REACTIONS (11)
  - Panniculitis [None]
  - Lacrimation increased [None]
  - Dry eye [None]
  - Skin mass [None]
  - Headache [None]
  - Oral pustule [None]
  - Acute febrile neutrophilic dermatosis [None]
  - Nervous system disorder [None]
  - Skin plaque [None]
  - Episcleritis [None]
  - Arthralgia [None]
